FAERS Safety Report 16412660 (Version 3)
Quarter: 2023Q2

REPORT INFORMATION
  Report Type: Spontaneous
  Country: PL (occurrence: PL)
  Receive Date: 20190611
  Receipt Date: 20230427
  Transmission Date: 20230721
  Serious: Yes (Other)
  Sender: FDA-Public Use
  Company Number: None

PATIENT
  Age: 27 Year
  Sex: Female

DRUGS (27)
  1. MELPHALAN [Suspect]
     Active Substance: MELPHALAN
     Indication: Non-Hodgkin^s lymphoma refractory
     Dosage: UNK, BEAM REGIMEN
     Route: 065
  2. BLEOMYCIN [Suspect]
     Active Substance: BLEOMYCIN SULFATE
     Indication: Non-Hodgkin^s lymphoma refractory
     Dosage: UNK, BEACOPP REGIMEN
     Route: 065
  3. BLEOMYCIN [Suspect]
     Active Substance: BLEOMYCIN SULFATE
     Dosage: 6 CYCLES, ABVD REGIMEN
     Route: 065
  4. CARMUSTINE [Suspect]
     Active Substance: CARMUSTINE
     Indication: Non-Hodgkin^s lymphoma refractory
     Dosage: UNK, BEAM REGIMEN
     Route: 065
  5. CISPLATIN [Suspect]
     Active Substance: CISPLATIN
     Indication: Non-Hodgkin^s lymphoma refractory
     Dosage: ESHAP REGIMEN
     Route: 016
  6. CISPLATIN [Suspect]
     Active Substance: CISPLATIN
     Indication: Hodgkin^s disease nodular sclerosis
  7. CYTARABINE [Suspect]
     Active Substance: CYTARABINE
     Indication: Non-Hodgkin^s lymphoma refractory
     Dosage: UNK, BEAM REGIMEN
     Route: 065
  8. CYTARABINE [Suspect]
     Active Substance: CYTARABINE
     Indication: Hodgkin^s disease nodular sclerosis
     Dosage: ESHAP REGIMEN
     Route: 065
  9. DACARBAZINE [Suspect]
     Active Substance: DACARBAZINE
     Indication: Non-Hodgkin^s lymphoma refractory
     Dosage: ABVD REGIMEN
     Route: 016
  10. DACARBAZINE [Suspect]
     Active Substance: DACARBAZINE
     Dosage: 6 CYCLES, ABVD REGIMEN
     Route: 065
  11. DOXORUBICIN [Suspect]
     Active Substance: DOXORUBICIN
     Indication: Non-Hodgkin^s lymphoma refractory
     Dosage: BEACOPP REGIMEN
     Route: 065
  12. DOXORUBICIN [Suspect]
     Active Substance: DOXORUBICIN
     Indication: Hodgkin^s disease nodular sclerosis
     Dosage: 6 CYCLES, ABVD REGIMEN
     Route: 065
  13. CYCLOPHOSPHAMIDE [Suspect]
     Active Substance: CYCLOPHOSPHAMIDE
     Indication: Non-Hodgkin^s lymphoma refractory
     Dosage: UNK, BEACOPP REGIMEN
     Route: 065
  14. CYCLOPHOSPHAMIDE [Suspect]
     Active Substance: CYCLOPHOSPHAMIDE
     Indication: Hodgkin^s disease nodular sclerosis
     Dosage: UNK
     Route: 065
  15. ETOPOSIDE [Suspect]
     Active Substance: ETOPOSIDE
     Indication: Hodgkin^s disease nodular sclerosis
     Dosage: UNK, ESHAP REGIMEN
     Route: 065
  16. ETOPOSIDE [Suspect]
     Active Substance: ETOPOSIDE
     Indication: Non-Hodgkin^s lymphoma refractory
     Dosage: BEACOPP REGIMEN
     Route: 065
  17. ETOPOSIDE [Suspect]
     Active Substance: ETOPOSIDE
     Dosage: BEAM REGIMEN
     Route: 065
  18. ETOPOSIDE [Suspect]
     Active Substance: ETOPOSIDE
     Dosage: HIGH DOSE CHEMOTHERAPY, ESHAP REGIMEN
     Route: 065
  19. METHYLPREDNISOLONE [Suspect]
     Active Substance: METHYLPREDNISOLONE
     Indication: Non-Hodgkin^s lymphoma refractory
     Dosage: UNK, ESHAP REGIMEN
     Route: 065
  20. METHYLPREDNISOLONE [Suspect]
     Active Substance: METHYLPREDNISOLONE
     Indication: Hodgkin^s disease nodular sclerosis
  21. PREDNISONE [Suspect]
     Active Substance: PREDNISONE
     Indication: Hodgkin^s disease nodular sclerosis
     Dosage: UNK
     Route: 065
  22. PREDNISONE [Suspect]
     Active Substance: PREDNISONE
     Indication: Non-Hodgkin^s lymphoma refractory
     Dosage: BEACOPP REGIMEN
     Route: 065
  23. PROCARBAZINE [Suspect]
     Active Substance: PROCARBAZINE
     Indication: Non-Hodgkin^s lymphoma refractory
     Dosage: UNK, BEACOPP REGIMEN
     Route: 065
  24. VINBLASTINE [Suspect]
     Active Substance: VINBLASTINE
     Indication: Non-Hodgkin^s lymphoma refractory
     Dosage: ABVD REGIMEN
     Route: 016
  25. VINBLASTINE [Suspect]
     Active Substance: VINBLASTINE
     Dosage: 6 CYCLES, ABVD REGIMEN
     Route: 065
  26. VINCRISTINE [Suspect]
     Active Substance: VINCRISTINE
     Indication: Non-Hodgkin^s lymphoma refractory
     Dosage: UNK, BEACOPP REGIMEN
     Route: 065
  27. VINCRISTINE [Suspect]
     Active Substance: VINCRISTINE
     Indication: Hodgkin^s disease nodular sclerosis
     Dosage: 6 CYCLES, ABVD REGIMEN
     Route: 065

REACTIONS (6)
  - Hodgkin^s disease nodular sclerosis [Unknown]
  - Hodgkin^s disease recurrent [Recovered/Resolved]
  - Lymphadenopathy [Unknown]
  - Malignant neoplasm progression [Recovered/Resolved]
  - Drug resistance [Unknown]
  - Product use in unapproved indication [Unknown]
